FAERS Safety Report 6988588-8 (Version None)
Quarter: 2010Q3

REPORT INFORMATION
  Report Type: 
  Country: None (occurrence: None)
  Receive Date: 20100916
  Receipt Date: 20100908
  Transmission Date: 20110219
  Serious: Yes (Hospitalization, Other)
  Sender: FDA-Public Use
  Company Number: US-ABBOTT-10P-163-0636569-00

PATIENT
  Sex: Female
  Weight: 54.48 kg

DRUGS (13)
  1. HUMIRA [Suspect]
     Indication: RHEUMATOID ARTHRITIS
     Route: 058
     Dates: start: 20100105, end: 20100316
  2. ZOSTIRE [Concomitant]
     Indication: ASTHMA
  3. UNKNOWN STEROID INJECTION [Concomitant]
     Indication: RHEUMATOID ARTHRITIS
  4. VENTYLIN [Concomitant]
     Indication: ASTHMA
  5. ALBUTEROL [Concomitant]
     Indication: ASTHMA
  6. PROTONIX [Concomitant]
     Indication: PRODUCT USED FOR UNKNOWN INDICATION
  7. VOSPIRE [Concomitant]
     Indication: PRODUCT USED FOR UNKNOWN INDICATION
  8. PEPCID [Concomitant]
     Indication: PRODUCT USED FOR UNKNOWN INDICATION
  9. PROMETHAZINE [Concomitant]
     Indication: NAUSEA
     Dosage: AS NEEDED
  10. ZITHROMAX LR [Concomitant]
     Indication: PRODUCT USED FOR UNKNOWN INDICATION
  11. HYDROCODONE [Concomitant]
     Indication: PAIN
     Dosage: 5/500 MG; AS NEEDED
  12. CALCIUM [Concomitant]
     Indication: PRODUCT USED FOR UNKNOWN INDICATION
  13. NEBULIZER [Concomitant]
     Indication: PRODUCT USED FOR UNKNOWN INDICATION

REACTIONS (9)
  - AURICULAR SWELLING [None]
  - DYSPNOEA [None]
  - EYE SWELLING [None]
  - LUNG DISORDER [None]
  - PNEUMONIA [None]
  - PRURITUS [None]
  - RESPIRATORY TRACT CONGESTION [None]
  - SWELLING FACE [None]
  - WHEEZING [None]
